FAERS Safety Report 24394653 (Version 1)
Quarter: 2024Q4

REPORT INFORMATION
  Report Type: Spontaneous
  Country: US (occurrence: US)
  Receive Date: 20241004
  Receipt Date: 20241004
  Transmission Date: 20250114
  Serious: Yes (Other)
  Sender: INSMED
  Company Number: US-INSMED, INC.-2024-03895-US

PATIENT

DRUGS (1)
  1. ARIKAYCE [Suspect]
     Active Substance: AMIKACIN
     Indication: Product used for unknown indication
     Dosage: UNK, UNK
     Route: 055

REACTIONS (4)
  - Pulmonary fibrosis [Unknown]
  - Immunodeficiency [Unknown]
  - Productive cough [Unknown]
  - Dyspnoea [Unknown]
